FAERS Safety Report 7795923-X (Version None)
Quarter: 2011Q4

REPORT INFORMATION
  Report Type: 
  Country: None (occurrence: None)
  Receive Date: 20111004
  Receipt Date: 20110930
  Transmission Date: 20120403
  Serious: Yes (Life-Threatening, Hospitalization, Disabling, Other)
  Sender: FDA-Public Use
  Company Number: AU-B.I. PHARMACEUTICALS,INC./RIDGEFIELD-2011-AU-01390AU

PATIENT
  Sex: Male
  Weight: 71 kg

DRUGS (3)
  1. PRADAXA [Suspect]
     Indication: ATRIAL FIBRILLATION
     Dosage: 220 MG
     Dates: start: 20110808, end: 20110902
  2. FUROSEMIDE [Concomitant]
     Dosage: ONE TABLET ON ALT DAYS
     Dates: start: 20010216
  3. PERINDOPRIL ERBUMINE [Concomitant]
     Dates: start: 20100424

REACTIONS (2)
  - URTICARIA [None]
  - CEREBRAL INFARCTION [None]
